FAERS Safety Report 12313557 (Version 1)
Quarter: 2016Q2

REPORT INFORMATION
  Report Type: Spontaneous
  Country: US (occurrence: None)
  Receive Date: 20160427
  Receipt Date: 20160427
  Transmission Date: 20160815
  Serious: No
  Sender: FDA-Public Use
  Company Number: None

PATIENT
  Age: 72 Year
  Sex: Female
  Weight: 68.04 kg

DRUGS (8)
  1. KENALOG [Suspect]
     Active Substance: TRIAMCINOLONE ACETONIDE
     Indication: MULTIPLE ALLERGIES
     Dosage: 40 NEVER AGAIN! INJECTION HIP
     Dates: start: 20160413, end: 20160413
  2. PROBIOTICS [Suspect]
     Active Substance: PROBIOTICS NOS
  3. CALCIUM [Concomitant]
     Active Substance: CALCIUM
  4. MAGNESIUM [Concomitant]
     Active Substance: MAGNESIUM
  5. ZINC [Concomitant]
     Active Substance: ZINC\ZINC CHLORIDE
  6. MEDS FOR ELEVATED B.P. [Concomitant]
  7. VIT E (NATURAL) [Concomitant]
  8. NEBULIZER [Concomitant]
     Active Substance: DEVICE

REACTIONS (21)
  - Polydipsia [None]
  - Nervousness [None]
  - Palpitations [None]
  - Fear of death [None]
  - Insomnia [None]
  - Arterial occlusive disease [None]
  - Abdominal distension [None]
  - Activities of daily living impaired [None]
  - Mental impairment [None]
  - Bone pain [None]
  - Somnolence [None]
  - Dyspnoea [None]
  - Hyperhidrosis [None]
  - Fatigue [None]
  - Thirst [None]
  - Unevaluable event [None]
  - Grip strength decreased [None]
  - Eructation [None]
  - Feeling abnormal [None]
  - Blood potassium abnormal [None]
  - Swelling [None]

NARRATIVE: CASE EVENT DATE: 20160414
